FAERS Safety Report 15545564 (Version 1)
Quarter: 2018Q4

REPORT INFORMATION
  Report Type: Report from Study
  Country: CA (occurrence: CA)
  Receive Date: 20181024
  Receipt Date: 20181024
  Transmission Date: 20190205
  Serious: Yes (Disabling)
  Sender: FDA-Public Use
  Company Number: CA-ASTRAZENECA-2018SF20328

PATIENT
  Age: 51 Year
  Sex: Female

DRUGS (2)
  1. FASLODEX [Suspect]
     Active Substance: FULVESTRANT
     Route: 030
     Dates: start: 20180930
  2. FASLODEX [Suspect]
     Active Substance: FULVESTRANT
     Route: 030

REACTIONS (3)
  - Hypoaesthesia oral [Recovering/Resolving]
  - Hypoaesthesia [Recovering/Resolving]
  - Dysgeusia [Recovering/Resolving]
